FAERS Safety Report 7618934-3 (Version None)
Quarter: 2011Q3

REPORT INFORMATION
  Report Type: 
  Country: None (occurrence: None)
  Receive Date: 20110718
  Receipt Date: 20110718
  Transmission Date: 20111222
  Serious: Yes (Other)
  Sender: FDA-Public Use
  Company Number: ZA-PFIZER INC-2011150760

PATIENT
  Age: 45 Year
  Sex: Female

DRUGS (1)
  1. VARENICLINE TARTRATE [Suspect]
     Indication: SMOKING CESSATION THERAPY
     Dosage: UNK

REACTIONS (4)
  - IRRITABILITY [None]
  - MENTAL STATUS CHANGES [None]
  - ANXIETY [None]
  - TOBACCO WITHDRAWAL SYMPTOMS [None]
